FAERS Safety Report 17571052 (Version 1)
Quarter: 2020Q1

REPORT INFORMATION
  Report Type: Spontaneous
  Country: US (occurrence: US)
  Receive Date: 20200323
  Receipt Date: 20200323
  Transmission Date: 20200409
  Serious: No
  Sender: FDA-Public Use
  Company Number: US-AUROBINDO-AUR-APL-2019-014125

PATIENT
  Sex: Male
  Weight: 141 kg

DRUGS (5)
  1. METHOCARBAMOL. [Suspect]
     Active Substance: METHOCARBAMOL
     Indication: NEURALGIA
     Dosage: 500 MILLIGRAM, TWO TIMES A DAY
     Route: 048
     Dates: start: 201803, end: 201803
  2. LYRICA [Suspect]
     Active Substance: PREGABALIN
     Dosage: UNK
     Route: 065
  3. DULOXETINE. [Concomitant]
     Active Substance: DULOXETINE
     Indication: DEPRESSION
     Dosage: UNK
  4. GABAPENTIN CAPSULES [Suspect]
     Active Substance: GABAPENTIN
     Indication: NEURALGIA
     Dosage: 300 MILLIGRAM ONE DURING THE DAY AND 2 AT NIGHT
     Route: 065
     Dates: start: 201809, end: 201809
  5. LYRICA [Suspect]
     Active Substance: PREGABALIN
     Indication: NEURALGIA
     Dosage: 20 MILLIGRAM ONE DURING THE DAY AND 2 AT NIGHT
     Route: 048
     Dates: start: 201809

REACTIONS (5)
  - Somnolence [Recovered/Resolved]
  - Drug ineffective [Unknown]
  - Hypersensitivity [Recovered/Resolved]
  - Rash [Unknown]
  - Pruritus [Unknown]

NARRATIVE: CASE EVENT DATE: 201809
